FAERS Safety Report 12920573 (Version 2)
Quarter: 2016Q4

REPORT INFORMATION
  Report Type: Spontaneous
  Country: JP (occurrence: JP)
  Receive Date: 20161108
  Receipt Date: 20161227
  Transmission Date: 20170207
  Serious: Yes (Death, Other)
  Sender: FDA-Public Use
  Company Number: PHJP2016JP031870

PATIENT
  Age: 72 Year
  Sex: Female

DRUGS (2)
  1. PRALIA [Concomitant]
     Active Substance: DENOSUMAB
     Indication: PRODUCT USED FOR UNKNOWN INDICATION
     Dosage: UNK
     Route: 065
  2. ZOMETA [Suspect]
     Active Substance: ZOLEDRONIC ACID
     Indication: METASTASES TO BONE
     Dosage: 4 MG, UNK
     Route: 042

REACTIONS (8)
  - Malignant neoplasm progression [Fatal]
  - Metastases to lung [Fatal]
  - C-telopeptide increased [Unknown]
  - Inflammation [Unknown]
  - Femur fracture [Unknown]
  - Blood alkaline phosphatase increased [Unknown]
  - Fall [Unknown]
  - Atypical femur fracture [Unknown]
